FAERS Safety Report 18545828 (Version 2)
Quarter: 2020Q4

REPORT INFORMATION
  Report Type: Report from Study
  Country: JP (occurrence: JP)
  Receive Date: 20201125
  Receipt Date: 20201204
  Transmission Date: 20210114
  Serious: No
  Sender: FDA-Public Use
  Company Number: JP-JNJFOC-20201135772

PATIENT

DRUGS (1)
  1. RISPERDAL [Suspect]
     Active Substance: RISPERIDONE
     Indication: DELIRIUM
     Dosage: DOSE UNKNOWN
     Route: 048

REACTIONS (2)
  - Somnolence [Unknown]
  - Sedation complication [Unknown]
